FAERS Safety Report 5093361-4 (Version None)
Quarter: 2006Q3

REPORT INFORMATION
  Report Type: 
  Country: None (occurrence: None)
  Receive Date: 20060828
  Receipt Date: 20060816
  Transmission Date: 20061208
  Serious: Yes (Hospitalization)
  Sender: FDA-Public Use
  Company Number: 2006100194

PATIENT
  Age: 84 Year
  Sex: Female

DRUGS (9)
  1. ALDACTONE [Suspect]
     Indication: CARDIAC FAILURE
     Dosage: 0.5 DF (INTERVAL:  EVERY DAY), ORAL
     Route: 048
     Dates: end: 20060101
  2. LISINOPRIL [Suspect]
     Indication: CARDIAC FAILURE
     Dosage: 20 MG (20 MG, INTERVAL:  EVERY DAY), ORAL
     Route: 048
  3. BUMETANIDE [Suspect]
     Indication: CARDIAC FAILURE
     Dosage: 1 MG (INTERVAL:  EVERY DAY), ORAL
     Route: 048
     Dates: end: 20060101
  4. PRAVASTATIN [Concomitant]
  5. ACARBOSE [Concomitant]
  6. PLAVIX [Concomitant]
  7. PANTOPRAZOLE SODIUM [Concomitant]
  8. DAFALGAN (PARACETAMOL) [Concomitant]
  9. ZOLPIDEM TARTRATE [Concomitant]

REACTIONS (4)
  - ASTHENIA [None]
  - BACK PAIN [None]
  - DEHYDRATION [None]
  - RENAL FAILURE [None]
